FAERS Safety Report 8018327-3 (Version None)
Quarter: 2012Q1

REPORT INFORMATION
  Report Type: 
  Country: None (occurrence: None)
  Receive Date: 20120103
  Receipt Date: 20111223
  Transmission Date: 20120608
  Serious: Yes (Other)
  Sender: FDA-Public Use
  Company Number: US-BAYER-2011-054829

PATIENT
  Age: 31 Year
  Sex: Female
  Weight: 55 kg

DRUGS (1)
  1. YAZ [Suspect]
     Indication: CONTRACEPTION
     Dosage: UNK
     Dates: start: 20080101, end: 20090101

REACTIONS (5)
  - INJURY [None]
  - CHOLELITHIASIS [None]
  - GALLBLADDER DISORDER [None]
  - GALLBLADDER NON-FUNCTIONING [None]
  - PAIN [None]
